FAERS Safety Report 13172103 (Version 2)
Quarter: 2017Q1

REPORT INFORMATION
  Report Type: Report from Study
  Country: CA (occurrence: CA)
  Receive Date: 20170131
  Receipt Date: 20170201
  Transmission Date: 20170428
  Serious: Yes (Other)
  Sender: FDA-Public Use
  Company Number: CA-HLSUS-2017-CA-000090

PATIENT
  Age: 64 Year
  Sex: Male

DRUGS (1)
  1. CLOZARIL [Suspect]
     Active Substance: CLOZAPINE
     Dosage: 350 MG DAILY
     Route: 048

REACTIONS (3)
  - Antipsychotic drug level increased [Unknown]
  - Seizure [Unknown]
  - Fall [Unknown]

NARRATIVE: CASE EVENT DATE: 20161227
